FAERS Safety Report 8475161-8 (Version None)
Quarter: 2012Q2

REPORT INFORMATION
  Report Type: 
  Country: None (occurrence: None)
  Receive Date: 20120628
  Receipt Date: 20120626
  Transmission Date: 20120825
  Serious: Yes (Death)
  Sender: FDA-Public Use
  Company Number: JP-PFIZER INC-2012148698

PATIENT
  Age: 90 Year
  Sex: Male

DRUGS (1)
  1. PIPERACILLIN AND TAZOBACTAM [Suspect]
     Dosage: 6.75 G, 1X/DAY
     Route: 041
     Dates: start: 20110114, end: 20110115

REACTIONS (1)
  - DEATH [None]
